FAERS Safety Report 18936985 (Version 16)
Quarter: 2024Q1

REPORT INFORMATION
  Report Type: Other
  Country: CA (occurrence: CA)
  Receive Date: 20210225
  Receipt Date: 20240307
  Transmission Date: 20240410
  Serious: Yes (Hospitalization, Other)
  Sender: FDA-Public Use
  Company Number: CA-GLENMARK PHARMACEUTICALS-2021GMK052300

PATIENT

DRUGS (282)
  1. GABAPENTIN [Suspect]
     Active Substance: GABAPENTIN
     Indication: Pain management
     Dosage: 600 MILLIGRAM, TID (1 EVERY 8 HOURS)
     Route: 048
  2. GABAPENTIN [Suspect]
     Active Substance: GABAPENTIN
     Indication: Back pain
     Dosage: 600 MILLIGRAM (3 EVERY 1 DAYS)
     Route: 048
  3. GABAPENTIN [Suspect]
     Active Substance: GABAPENTIN
     Indication: Child abuse
     Dosage: 600 MILLIGRAM (2 EVERY 1 DAYS)
     Route: 048
  4. GABAPENTIN [Suspect]
     Active Substance: GABAPENTIN
     Dosage: 600 MILLIGRAM
     Route: 048
  5. ARIPIPRAZOLE [Suspect]
     Active Substance: ARIPIPRAZOLE
     Indication: Product used for unknown indication
     Dosage: 2 MILLIGRAM, 1 EVERY 1 DAY
     Route: 048
  6. ARIPIPRAZOLE [Suspect]
     Active Substance: ARIPIPRAZOLE
     Dosage: 2 MILLIGRAM, 3 EVERY 1 DAY
     Route: 048
  7. ARIPIPRAZOLE [Suspect]
     Active Substance: ARIPIPRAZOLE
     Indication: Child abuse
     Dosage: 2 MILLIGRAM, TID
     Route: 048
  8. ARIPIPRAZOLE [Suspect]
     Active Substance: ARIPIPRAZOLE
     Dosage: 2 MILLIGRAM, OD (1 EVERY 1 DAYS)
     Route: 048
  9. ARIPIPRAZOLE [Suspect]
     Active Substance: ARIPIPRAZOLE
     Dosage: UNK
     Route: 065
  10. ARIPIPRAZOLE [Suspect]
     Active Substance: ARIPIPRAZOLE
     Dosage: 2 MILLIGRAM 1 EVERY 8 HOURS
     Route: 048
  11. ARIPIPRAZOLE [Suspect]
     Active Substance: ARIPIPRAZOLE
     Dosage: 2 MILLIGRAM 1 EVERY 8 HOURS
     Route: 048
  12. ARIPIPRAZOLE [Suspect]
     Active Substance: ARIPIPRAZOLE
     Dosage: 2 MILLIGRAM
     Route: 048
  13. VITAMIN C [Suspect]
     Active Substance: ASCORBIC ACID
     Indication: Child abuse
     Dosage: 1500 MILLIGRAM, OD (1 EVERY 1 DAYS)
     Route: 048
  14. VITAMIN C [Suspect]
     Active Substance: ASCORBIC ACID
     Dosage: 1500 MILLIGRAM, OD (1 EVERY 1 DAYS)
     Route: 048
  15. VITAMIN C [Suspect]
     Active Substance: ASCORBIC ACID
     Dosage: 1500 MILLIGRAM
     Route: 048
  16. LORAZEPAM [Suspect]
     Active Substance: LORAZEPAM
     Indication: Seizure
     Dosage: UNK
     Route: 065
  17. LORAZEPAM [Suspect]
     Active Substance: LORAZEPAM
     Indication: Pain management
     Dosage: UNK
     Route: 065
  18. LORAZEPAM [Suspect]
     Active Substance: LORAZEPAM
     Indication: Muscle spasms
     Dosage: 0.5 MILLIGRAM
     Route: 060
  19. LORAZEPAM [Suspect]
     Active Substance: LORAZEPAM
     Indication: Back pain
     Dosage: 2 MILLIGRAM
     Route: 060
  20. BACLOFEN [Suspect]
     Active Substance: BACLOFEN
     Indication: Child abuse
     Dosage: 20 MILLIGRAM, TID (EVERY 8 HOURS)
     Route: 048
  21. BACLOFEN [Suspect]
     Active Substance: BACLOFEN
     Dosage: 1500 MILLIGRAM, OD
     Route: 048
  22. BACLOFEN [Suspect]
     Active Substance: BACLOFEN
     Dosage: 20 MILLIGRAM, TID (EVERY 8 HOURS)
     Route: 048
  23. BACLOFEN [Suspect]
     Active Substance: BACLOFEN
     Dosage: 20 MILLIGRAM (3 EVERY 1 DAYS)
     Route: 048
  24. BACLOFEN [Suspect]
     Active Substance: BACLOFEN
     Dosage: 20 MILLIGRAM
     Route: 048
  25. BISACODYL [Suspect]
     Active Substance: BISACODYL
     Indication: Child abuse
     Dosage: 5 MILLIGRAM, OD
     Route: 048
  26. BISACODYL [Suspect]
     Active Substance: BISACODYL
     Dosage: 5 MILLIGRAM, PRN
     Route: 048
  27. BISACODYL [Suspect]
     Active Substance: BISACODYL
     Dosage: UNK
     Route: 065
  28. BISACODYL [Suspect]
     Active Substance: BISACODYL
     Dosage: 5 MILLIGRAM (1 EVERY 1 DAYS)
     Route: 048
  29. BISACODYL [Suspect]
     Active Substance: BISACODYL
     Dosage: 5 MILLIGRAM (1 EVERY 1 DAYS)
     Route: 048
  30. BISACODYL [Suspect]
     Active Substance: BISACODYL
     Dosage: 5 MILLIGRAM
     Route: 048
  31. BISACODYL [Suspect]
     Active Substance: BISACODYL
     Dosage: 5 MILLIGRAM (1 EVERY 1 DAYS)
     Route: 065
  32. CELECOXIB [Suspect]
     Active Substance: CELECOXIB
     Indication: Pain management
     Dosage: 100 MILLIGRAM, BID (FORMULATION: CAPSULE)
     Route: 048
  33. CELECOXIB [Suspect]
     Active Substance: CELECOXIB
     Indication: Back pain
     Dosage: 100 MILLIGRAM, BID (FORMULATION: UNKNOWN)
     Route: 048
  34. CELECOXIB [Suspect]
     Active Substance: CELECOXIB
     Indication: Child abuse
     Dosage: 100.0 MILLIGRAM, 1 EVERY .5 DAYS (FORMULATION: CAPSULES)
     Route: 065
  35. CELECOXIB [Suspect]
     Active Substance: CELECOXIB
     Dosage: UNK, (FORMULATION: CAPSULE, HARD)
     Route: 065
  36. CELECOXIB [Suspect]
     Active Substance: CELECOXIB
     Dosage: UNK, (FORMULATION: CAPSULE, HARD)
     Route: 065
  37. CELECOXIB [Suspect]
     Active Substance: CELECOXIB
     Dosage: 100 MILLIGRAM (2 EVERY 1 DAYS)
     Route: 065
  38. CELECOXIB [Suspect]
     Active Substance: CELECOXIB
     Dosage: 100 MILLIGRAM (2 EVERY 1 DAYS)
     Route: 065
  39. CELECOXIB [Suspect]
     Active Substance: CELECOXIB
     Dosage: 100 MILLIGRAM
     Route: 048
  40. CLOBAZAM [Suspect]
     Active Substance: CLOBAZAM
     Indication: Child abuse
     Dosage: 20 MILLIGRAM, BID
     Route: 048
  41. CLOBAZAM [Suspect]
     Active Substance: CLOBAZAM
     Indication: Back pain
     Dosage: UNK
     Route: 065
  42. CLOBAZAM [Suspect]
     Active Substance: CLOBAZAM
     Indication: Pruritus
     Dosage: 20 MILLIGRAM (1 EVERY .5 DAYS)
     Route: 048
  43. CLOBAZAM [Suspect]
     Active Substance: CLOBAZAM
     Indication: Pain management
     Dosage: 20 MILLIGRAM 1 EVERY 12 HOURS
     Route: 048
  44. CLOBAZAM [Suspect]
     Active Substance: CLOBAZAM
     Indication: Seizure
     Dosage: 20 MILLIGRAM 1 EVERY 12 HOURS
     Route: 048
  45. CLOBAZAM [Suspect]
     Active Substance: CLOBAZAM
     Dosage: 20 MILLIGRAM 2 EVERY 1 DAYS
     Route: 048
  46. CLOBAZAM [Suspect]
     Active Substance: CLOBAZAM
     Dosage: 20 MILLIGRAM
     Route: 048
  47. CLONIDINE [Suspect]
     Active Substance: CLONIDINE
     Indication: Child abuse
     Dosage: 0.1 MILLIGRAM, OD
     Route: 048
  48. CLONIDINE [Suspect]
     Active Substance: CLONIDINE
     Dosage: UNK
     Route: 048
  49. CLONIDINE [Suspect]
     Active Substance: CLONIDINE
     Dosage: 0.5 MILLIGRAM, OD
     Route: 048
  50. CLONIDINE [Suspect]
     Active Substance: CLONIDINE
     Dosage: UNK
     Route: 065
  51. CLONIDINE [Suspect]
     Active Substance: CLONIDINE
     Dosage: 0.5 MILLIGRAM, OD
     Route: 048
  52. CLONIDINE [Suspect]
     Active Substance: CLONIDINE
     Dosage: 0.05 MILLIGRAM, QD
     Route: 048
  53. CLONIDINE [Suspect]
     Active Substance: CLONIDINE
     Dosage: 0.5 MILLIGRAM (1 EVERY .5 DAYS)
     Route: 048
  54. CLONIDINE [Suspect]
     Active Substance: CLONIDINE
     Dosage: 0.1 MILLIGRAM
     Route: 048
  55. CLONIDINE [Suspect]
     Active Substance: CLONIDINE
     Dosage: 0.1 MILLIGRAM (1 EVERY 1 DAYS)
     Route: 048
  56. CLONIDINE [Suspect]
     Active Substance: CLONIDINE
     Dosage: 0.1 MILLIGRAM (1 EVERY 1 DAYS)
     Route: 048
  57. CLONIDINE [Suspect]
     Active Substance: CLONIDINE
     Dosage: 0.5 MILLIGRAM (1 EVERY 1 DAYS)
     Route: 048
  58. CLONIDINE [Suspect]
     Active Substance: CLONIDINE
     Dosage: 0.05 MILLIGRAM
     Route: 048
  59. CLONIDINE [Suspect]
     Active Substance: CLONIDINE
     Dosage: 0.05 MILLIGRAM
     Route: 048
  60. DIMENHYDRINATE [Suspect]
     Active Substance: DIMENHYDRINATE
     Indication: Constipation
     Dosage: 25 MILLIGRAM, OD
     Route: 048
  61. DIMENHYDRINATE [Suspect]
     Active Substance: DIMENHYDRINATE
     Indication: Child abuse
     Dosage: 25 MILLIGRAM, PRN
     Route: 065
  62. DIMENHYDRINATE [Suspect]
     Active Substance: DIMENHYDRINATE
     Indication: Pruritus
     Dosage: 20 MILLIGRAM
     Route: 048
  63. DIMENHYDRINATE [Suspect]
     Active Substance: DIMENHYDRINATE
     Dosage: 12.5 MILLIGRAM (1 EVERY 6 HOURS)
     Route: 048
  64. DIMENHYDRINATE [Suspect]
     Active Substance: DIMENHYDRINATE
     Dosage: 20 MILLIGRAM
     Route: 065
  65. DIMENHYDRINATE [Suspect]
     Active Substance: DIMENHYDRINATE
     Dosage: 25 MILLIGRAM
     Route: 048
  66. DIMENHYDRINATE [Suspect]
     Active Substance: DIMENHYDRINATE
     Dosage: 12.5 MILLIGRAM
     Route: 048
  67. DIMENHYDRINATE [Suspect]
     Active Substance: DIMENHYDRINATE
     Dosage: 20 MILLIGRAM (1 EVERY 1 DAYS)
     Route: 065
  68. DIMENHYDRINATE [Suspect]
     Active Substance: DIMENHYDRINATE
     Dosage: 25 MILLIGRAM (1 EVERY 1 DAYS)
     Route: 048
  69. DIMENHYDRINATE [Suspect]
     Active Substance: DIMENHYDRINATE
     Dosage: 12.5 MILLIGRAM 4 EVERY 1 DAYS
     Route: 048
  70. DIPHENHYDRAMINE [Suspect]
     Active Substance: DIPHENHYDRAMINE
     Indication: Pruritus
     Dosage: 12.5 MILLIGRAM, QID (1 EVERY 6 HOURS)
     Route: 048
  71. DIPHENHYDRAMINE [Suspect]
     Active Substance: DIPHENHYDRAMINE
     Indication: Child abuse
     Dosage: 12.5 MILLIGRAM, QID (4 EVERY 1 DAYS)
     Route: 048
  72. DIPHENHYDRAMINE [Suspect]
     Active Substance: DIPHENHYDRAMINE
     Dosage: 12.5 MILLIGRAM
     Route: 048
  73. HYDROXYCHLOROQUINE SULFATE [Suspect]
     Active Substance: HYDROXYCHLOROQUINE SULFATE
     Indication: Product used for unknown indication
     Dosage: 400 MILLIGRAM, OD
     Route: 048
  74. GABAPENTIN [Suspect]
     Active Substance: GABAPENTIN
     Indication: Pain management
     Dosage: UNK
     Route: 065
  75. GABAPENTIN [Suspect]
     Active Substance: GABAPENTIN
     Indication: Child abuse
     Dosage: 600 MILLIGRAM, TID
     Route: 048
  76. DOCONEXENT\ICOSAPENT [Suspect]
     Active Substance: DOCONEXENT\ICOSAPENT
     Indication: Product used for unknown indication
     Dosage: 400 MILLIGRAM, 1 EVERY 1 DAYS
     Route: 048
  77. DOCONEXENT\ICOSAPENT [Suspect]
     Active Substance: DOCONEXENT\ICOSAPENT
     Indication: Product used for unknown indication
     Dosage: UNK
     Route: 048
  78. DOCONEXENT\ICOSAPENT [Suspect]
     Active Substance: DOCONEXENT\ICOSAPENT
     Indication: Product used for unknown indication
     Dosage: 200 MILLIGRAM, 1 EVERY 1 DAYS
     Route: 048
  79. DOCONEXENT\ICOSAPENT [Suspect]
     Active Substance: DOCONEXENT\ICOSAPENT
     Dosage: 400 MILLIGRAM, 1 EVERY 1 DAYS
     Route: 048
  80. DOCONEXENT\ICOSAPENT [Suspect]
     Active Substance: DOCONEXENT\ICOSAPENT
     Dosage: UNK
     Route: 065
  81. ROBAXACET [Suspect]
     Active Substance: ACETAMINOPHEN\METHOCARBAMOL
     Indication: Back pain
     Dosage: 900 MILLIGRAM, OD
     Route: 048
  82. ROBAXACET [Suspect]
     Active Substance: ACETAMINOPHEN\METHOCARBAMOL
     Dosage: 400 MILLIGRAM, 2 EVERY 1 DAYS
     Route: 048
  83. ROBAXACET [Suspect]
     Active Substance: ACETAMINOPHEN\METHOCARBAMOL
     Dosage: 900 MILLIGRAM, 1 EVERY 1 DAY
     Route: 048
  84. ACETAMINOPHEN\METHOCARBAMOL [Suspect]
     Active Substance: ACETAMINOPHEN\METHOCARBAMOL
     Indication: Child abuse
     Dosage: UNK, BID
     Route: 048
  85. ACETAMINOPHEN\METHOCARBAMOL [Suspect]
     Active Substance: ACETAMINOPHEN\METHOCARBAMOL
     Indication: Back pain
     Dosage: UNK, OD (1 EVERY 1 DAYS)
     Route: 048
  86. DOCONEXENT [Suspect]
     Active Substance: DOCONEXENT
     Indication: Product used for unknown indication
     Dosage: UNK
     Route: 065
  87. ACETAMINOPHEN\METHOCARBAMOL [Suspect]
     Active Substance: ACETAMINOPHEN\METHOCARBAMOL
     Indication: Back pain
     Dosage: 400 MILLIGRAM, BID
     Route: 065
  88. ACETAMINOPHEN\METHOCARBAMOL [Suspect]
     Active Substance: ACETAMINOPHEN\METHOCARBAMOL
     Dosage: 400 MILLIGRAM (2 EVERY 1 DAYS)
     Route: 048
  89. ACETAMINOPHEN\METHOCARBAMOL [Suspect]
     Active Substance: ACETAMINOPHEN\METHOCARBAMOL
     Dosage: 400 MILLIGRAM, 1 EVERY 12 HOURS
     Route: 065
  90. ACETAMINOPHEN\METHOCARBAMOL [Suspect]
     Active Substance: ACETAMINOPHEN\METHOCARBAMOL
     Dosage: 400 MILLIGRAM
     Route: 065
  91. DULCOLAX (BISACODYL) [Suspect]
     Active Substance: BISACODYL
     Indication: Child abuse
     Dosage: 0.5 MILLIGRAM, OD
     Route: 048
  92. DULCOLAX (BISACODYL) [Suspect]
     Active Substance: BISACODYL
     Dosage: 5 MILLIGRAM, OD (1 EVERY 1 DAYS)
     Route: 048
  93. DULCOLAX (BISACODYL) [Suspect]
     Active Substance: BISACODYL
     Dosage: 5 MILLIGRAM
     Route: 048
  94. DULCOLAX (BISACODYL) [Suspect]
     Active Substance: BISACODYL
     Dosage: UNK
     Route: 065
  95. CHOLECALCIFEROL [Suspect]
     Active Substance: CHOLECALCIFEROL
     Indication: Vitamin supplementation
     Dosage: 2000 INTERNATIONAL UNIT, OD
     Route: 048
  96. CHOLECALCIFEROL [Suspect]
     Active Substance: CHOLECALCIFEROL
     Dosage: 2000 INTERNATIONAL UNIT (1 EVERY 1 DAYS)
     Route: 048
  97. CHOLECALCIFEROL [Suspect]
     Active Substance: CHOLECALCIFEROL
     Dosage: UNK
     Route: 065
  98. FISH OIL [Suspect]
     Active Substance: FISH OIL
     Indication: Child abuse
     Dosage: 200 MILLIGRAM, OD
     Route: 048
  99. FISH OIL [Suspect]
     Active Substance: FISH OIL
     Dosage: UNK
     Route: 048
  100. FLUOXETINE [Suspect]
     Active Substance: FLUOXETINE HYDROCHLORIDE
     Indication: Child abuse
     Dosage: 20 MILLIGRAM, OD (1 EVERY 1 DAYS)
     Route: 048
  101. FLUTICASONE [Suspect]
     Active Substance: FLUTICASONE
     Indication: Child abuse
     Dosage: 250 MICROGRAM, OD (1 EVERY 1 DAYS)
  102. FLUTICASONE [Suspect]
     Active Substance: FLUTICASONE
     Dosage: 2 DOSAGE FORM, OD (1 EVERY 1 DAYS)
  103. FLUTICASONE [Suspect]
     Active Substance: FLUTICASONE
     Dosage: 250 MICROGRAM 1 EVERY 1 DAY
     Route: 048
  104. FLUTICASONE [Suspect]
     Active Substance: FLUTICASONE
     Dosage: UNK, 1 EVERY 1 DAYS
  105. FLUTICASONE [Suspect]
     Active Substance: FLUTICASONE
     Dosage: 1 DOSAGE FORM (1 EVERY 1 DAYS)
  106. FLUTICASONE [Suspect]
     Active Substance: FLUTICASONE
     Dosage: 2 DOSAGE FORM, OD (1 EVERY 1 DAYS)
     Route: 045
  107. FLUTICASONE [Suspect]
     Active Substance: FLUTICASONE
     Dosage: 250 MICROGRAM 1 EVERY 1 DAY
     Route: 045
  108. FLUTICASONE [Suspect]
     Active Substance: FLUTICASONE
     Dosage: UNK
  109. FLUTICASONE [Suspect]
     Active Substance: FLUTICASONE
     Dosage: UNK
  110. FLUTICASONE [Suspect]
     Active Substance: FLUTICASONE
     Dosage: 1 DOSAGE FORM (1 EVERY 1 DAYS)
     Route: 045
  111. FLUTICASONE [Suspect]
     Active Substance: FLUTICASONE
     Dosage: 1 DOSAGE FORM (1 EVERY 1 DAYS)
     Route: 045
  112. HYDROXYCHLOROQUINE [Suspect]
     Active Substance: HYDROXYCHLOROQUINE
     Indication: Child abuse
     Dosage: 400 MILLIGRAM, OD (1 EVERY 1 DAYS)
     Route: 048
  113. HYDROXYCHLOROQUINE [Suspect]
     Active Substance: HYDROXYCHLOROQUINE
     Dosage: 400 MILLIGRAM, OD
     Route: 048
  114. HYDROXYCHLOROQUINE [Suspect]
     Active Substance: HYDROXYCHLOROQUINE
     Dosage: 400 MILLIGRAM
     Route: 048
  115. CLONIDINE [Suspect]
     Active Substance: CLONIDINE
     Indication: Child abuse
     Dosage: 0.05 MILLIGRAM 1 EVERY 1 DAYS
     Route: 048
  116. CLONIDINE [Suspect]
     Active Substance: CLONIDINE
     Dosage: 0.5 MILLIGRAM 1 EVERY 1 DAYS
     Route: 048
  117. CLONIDINE [Suspect]
     Active Substance: CLONIDINE
     Dosage: 0.5 MILLIGRAM 1 EVERY 12 HOURS
     Route: 048
  118. CLONIDINE [Suspect]
     Active Substance: CLONIDINE
     Dosage: 0.1 MILLIGRAM 1 EVERY 1 DAYS
     Route: 048
  119. HYDROMORPHONE [Suspect]
     Active Substance: HYDROMORPHONE
     Indication: Pain management
     Dosage: UNK
     Route: 065
  120. HYDROMORPHONE [Suspect]
     Active Substance: HYDROMORPHONE
     Indication: Child abuse
     Dosage: 600 MILLIGRAM, TID
     Route: 048
  121. HYDROMORPHONE [Suspect]
     Active Substance: HYDROMORPHONE
     Indication: Back pain
  122. KETOROLAC TROMETHAMINE [Suspect]
     Active Substance: KETOROLAC TROMETHAMINE
     Indication: Pain
     Dosage: 20 MILLIGRAM, QID (1 EVERY 6 HOURS)
     Route: 048
  123. KETOROLAC TROMETHAMINE [Suspect]
     Active Substance: KETOROLAC TROMETHAMINE
     Indication: Child abuse
  124. VITAMIN C [Suspect]
     Active Substance: ASCORBIC ACID
     Indication: Product used for unknown indication
     Dosage: 1500 MILLIGRAM 1 EVERY 1 DAYS
     Route: 048
  125. LEUPROLIDE ACETATE [Suspect]
     Active Substance: ISOPROPYL ALCOHOL\LEUPROLIDE ACETATE
     Indication: Product used for unknown indication
     Dosage: 7.5 MILLIGRAM, 1 EVERY 1 MONTH
     Route: 030
  126. ELIGARD [Suspect]
     Active Substance: LEUPROLIDE ACETATE
     Indication: Precocious puberty
     Dosage: 7.5 MILLIGRAM 1 EVERY 1 MONTHS (POWDER FOR SUSPENSION, SUSTAINEDRELEASE)
     Route: 030
  127. ELIGARD [Suspect]
     Active Substance: LEUPROLIDE ACETATE
     Dosage: UNK
     Route: 058
  128. ELIGARD [Suspect]
     Active Substance: LEUPROLIDE ACETATE
     Dosage: UNK (POWDER FOR SUSPENSION, SUSTAINEDRELEASE)
     Route: 030
  129. LORAZEPAM [Suspect]
     Active Substance: LORAZEPAM
     Indication: Seizure
     Dosage: 0.5 MILLIGRAM, PRN
     Route: 060
  130. LORAZEPAM [Suspect]
     Active Substance: LORAZEPAM
     Indication: Pain management
     Dosage: 2 MILLIGRAM, PRN
     Route: 060
  131. LORAZEPAM [Suspect]
     Active Substance: LORAZEPAM
     Indication: Muscle spasms
     Dosage: UNK, PRN
     Route: 060
  132. LORAZEPAM [Suspect]
     Active Substance: LORAZEPAM
     Indication: Child abuse
     Dosage: 0.5 MILLIGRAM
     Route: 060
  133. LORAZEPAM [Suspect]
     Active Substance: LORAZEPAM
     Indication: Back pain
     Dosage: 2 MILLIGRAM
     Route: 060
  134. LORAZEPAM [Suspect]
     Active Substance: LORAZEPAM
     Dosage: UNK
     Route: 065
  135. LORAZEPAM [Suspect]
     Active Substance: LORAZEPAM
     Dosage: UNK
     Route: 065
  136. LORAZEPAM [Suspect]
     Active Substance: LORAZEPAM
     Dosage: 2 MILLIGRAM, OD (1 EVERY 1 DAYS)
     Route: 060
  137. LORAZEPAM [Suspect]
     Active Substance: LORAZEPAM
     Dosage: 0.5 MILLIGRAM
     Route: 060
  138. LORAZEPAM [Suspect]
     Active Substance: LORAZEPAM
     Dosage: UNK
     Route: 060
  139. LORAZEPAM [Suspect]
     Active Substance: LORAZEPAM
     Dosage: 0.5 MILLIGRAM, OD (1 EVERY 1 DAYS)
     Route: 060
  140. MELATONIN [Suspect]
     Active Substance: MELATONIN
     Indication: Sleep deficit
     Dosage: 10 MILLIGRAM, OD (1 EVERY 1 DAYS)
     Route: 048
  141. MELATONIN [Suspect]
     Active Substance: MELATONIN
     Indication: Child abuse
     Dosage: UNK
     Route: 065
  142. MELATONIN [Suspect]
     Active Substance: MELATONIN
     Indication: Sleep disorder
     Dosage: UNK
     Route: 048
  143. MELATONIN [Suspect]
     Active Substance: MELATONIN
     Dosage: 10 MILLIGRAM
     Route: 048
  144. METHADONE [Suspect]
     Active Substance: METHADONE HYDROCHLORIDE
     Indication: Back pain
     Dosage: 2 MILLIGRAM, TID (1 EVERY 8 HOURS)
     Route: 048
  145. METHADONE [Suspect]
     Active Substance: METHADONE HYDROCHLORIDE
     Indication: Child abuse
     Dosage: 2 MILLIGRAM, TID (3 EVERY 1 DAYS)
     Route: 048
  146. METHADONE [Suspect]
     Active Substance: METHADONE HYDROCHLORIDE
     Indication: Sleep deficit
     Dosage: 10 MILLIGRAM (1 EVERY 1 DAYS)
     Route: 048
  147. METHADONE [Suspect]
     Active Substance: METHADONE HYDROCHLORIDE
     Indication: Sleep disorder
     Dosage: 0.375 MILLIGRAM (1 EVERY 1 DAYS)
     Route: 048
  148. POLYETHYLENE GLYCOLS [Suspect]
     Active Substance: POLYETHYLENE GLYCOLS
     Indication: Product used for unknown indication
     Dosage: 30 MILLIGRAM 1 EVERY 12 HOURS
     Route: 048
  149. POLYETHYLENE GLYCOLS [Suspect]
     Active Substance: POLYETHYLENE GLYCOLS
     Dosage: 30 MILLIGRAM 2 EVERY 1 DAYS
     Route: 048
  150. METHOCARBAMOL [Suspect]
     Active Substance: METHOCARBAMOL
     Indication: Child abuse
     Dosage: UNK
     Route: 065
  151. METHOCARBAMOL [Suspect]
     Active Substance: METHOCARBAMOL
     Indication: Back pain
     Dosage: UNK 2 EVERY 1 DAYS
     Route: 048
  152. METHOCARBAMOL [Suspect]
     Active Substance: METHOCARBAMOL
     Dosage: UNK
     Route: 048
  153. METHOCARBAMOL [Suspect]
     Active Substance: METHOCARBAMOL
     Dosage: 400 MILLIGRAM (2 EVERY 1 DAYS)
     Route: 065
  154. METHOCARBAMOL [Suspect]
     Active Substance: METHOCARBAMOL
     Dosage: UNK (2 EVERY 1 DAYS)
     Route: 065
  155. METHOCARBAMOL [Suspect]
     Active Substance: METHOCARBAMOL
     Dosage: 10 MILLIGRAM
     Route: 048
  156. METHOCARBAMOL [Suspect]
     Active Substance: METHOCARBAMOL
     Dosage: 400 MILLIGRAM (2 EVERY 1 DAYS)
     Route: 048
  157. MONTELUKAST [Suspect]
     Active Substance: MONTELUKAST SODIUM
     Indication: Child abuse
     Dosage: 10 MILLIGRAM, OD (1 EVERY 1 DAYS)
     Route: 048
  158. MONTELUKAST [Suspect]
     Active Substance: MONTELUKAST SODIUM
     Indication: Pain
     Dosage: 10 MILLIGRAM
     Route: 048
  159. PANTOPRAZOLE [Suspect]
     Active Substance: PANTOPRAZOLE
     Indication: Child abuse
     Dosage: 40 MILLIGRAM, OD (1 EVERY 1 DAYS)
     Route: 048
  160. PANTOPRAZOLE [Suspect]
     Active Substance: PANTOPRAZOLE
     Dosage: 40 MILLIGRAM
     Route: 048
  161. PHENOBARBITAL [Suspect]
     Active Substance: PHENOBARBITAL
     Indication: Child abuse
     Dosage: 30 MILLIGRAM, BID (1 EVERY 12 HOURS)
     Route: 048
  162. PHENOBARBITAL [Suspect]
     Active Substance: PHENOBARBITAL
     Dosage: 30 MILLIGRAM, 1 EVERY 5 DAYS
     Route: 048
  163. PHENOBARBITAL [Suspect]
     Active Substance: PHENOBARBITAL
     Dosage: 30 MILLIGRAM, BID (2 EVERY 1 DAYS)
     Route: 048
  164. PHENOBARBITAL [Suspect]
     Active Substance: PHENOBARBITAL
     Dosage: 30 MILLIGRAM
     Route: 048
  165. RANITIDINE [Suspect]
     Active Substance: RANITIDINE
     Indication: Child abuse
     Dosage: 150 MILLIGRAM, OD
     Route: 048
  166. RANITIDINE [Suspect]
     Active Substance: RANITIDINE
     Dosage: 150 MILLIGRAM,
     Route: 048
  167. RANITIDINE [Suspect]
     Active Substance: RANITIDINE
     Dosage: 150 MILLIGRAM, 1 EVERY 1 DAY
     Route: 048
  168. HYDROMORPHONE HYDROCHLORIDE [Suspect]
     Active Substance: HYDROMORPHONE HYDROCHLORIDE
     Indication: Pain management
     Dosage: UNK
     Route: 065
  169. HYDROMORPHONE HYDROCHLORIDE [Suspect]
     Active Substance: HYDROMORPHONE HYDROCHLORIDE
     Dosage: 0.5 MILLIGRAM
     Route: 060
  170. ALBUTEROL [Suspect]
     Active Substance: ALBUTEROL
     Indication: Child abuse
     Dosage: 100 MICROGRAM, 1 EVERY 4 HOURS
  171. ALBUTEROL [Suspect]
     Active Substance: ALBUTEROL
     Dosage: UNK, PRN
     Route: 065
  172. ALBUTEROL [Suspect]
     Active Substance: ALBUTEROL
     Dosage: 2 DOSAGE FORM, 1 EVERY 4 HOURS
  173. ALBUTEROL [Suspect]
     Active Substance: ALBUTEROL
     Dosage: 100 MICROGRAM, 1 EVERY 4 HOURS
     Route: 065
  174. ALBUTEROL [Suspect]
     Active Substance: ALBUTEROL
     Dosage: 1 DOSAGE FORM, 1 EVERY 4 HOURS
  175. ALBUTEROL [Suspect]
     Active Substance: ALBUTEROL
     Dosage: UNK
  176. ALBUTEROL [Suspect]
     Active Substance: ALBUTEROL
     Dosage: UNK 1 EVERY 4 HOURS
  177. ALBUTEROL [Suspect]
     Active Substance: ALBUTEROL
     Dosage: 100 MICROGRAM
  178. ALBUTEROL [Suspect]
     Active Substance: ALBUTEROL
     Dosage: 150 MILLIGRAM 1 EVERY 4 HOURS
  179. ALBUTEROL [Suspect]
     Active Substance: ALBUTEROL
     Dosage: 100 MICROGRAM, CYCLICAL
  180. ALBUTEROL [Suspect]
     Active Substance: ALBUTEROL
     Dosage: 100 MICROGRAM, CYCLICAL
     Route: 065
  181. ALBUTEROL [Suspect]
     Active Substance: ALBUTEROL
     Dosage: 600 MILLIGRAM (1 EVERY 1 DAYS)
     Route: 065
  182. ALBUTEROL [Suspect]
     Active Substance: ALBUTEROL
     Dosage: 150 MILLIGRAM , (CYCLICAL)
  183. ALBUTEROL [Suspect]
     Active Substance: ALBUTEROL
     Dosage: 150 MILLIGRAM
  184. FISH OIL [Suspect]
     Active Substance: FISH OIL
     Indication: Child abuse
     Dosage: UNK
     Route: 048
  185. FISH OIL [Suspect]
     Active Substance: FISH OIL
     Dosage: UNK, 1 EVERY 1 DAY
     Route: 048
  186. FISH OIL [Suspect]
     Active Substance: FISH OIL
     Dosage: 200 MILLIGRAM, 1 EVERY 1 DAYS
     Route: 048
  187. FLUTICASONE PROPIONATE [Suspect]
     Active Substance: FLUTICASONE PROPIONATE
     Indication: Child abuse
     Dosage: UNK
  188. FLUTICASONE PROPIONATE [Suspect]
     Active Substance: FLUTICASONE PROPIONATE
     Dosage: 250 MICROGRAM, OD (1 EVERY 1 DAYS)
     Route: 065
  189. FLUTICASONE PROPIONATE [Suspect]
     Active Substance: FLUTICASONE PROPIONATE
     Dosage: UNK, OD (1 EVERY 1 DAYS)
  190. FLUTICASONE PROPIONATE [Suspect]
     Active Substance: FLUTICASONE PROPIONATE
     Dosage: UNK
     Route: 065
  191. LEUPROLIDE ACETATE [Suspect]
     Active Substance: ISOPROPYL ALCOHOL\LEUPROLIDE ACETATE
     Indication: Child abuse
     Dosage: 7.5 MILLIGRAM, 1 EVERY 30 DAYS
     Route: 030
  192. LEUPROLIDE ACETATE [Suspect]
     Active Substance: ISOPROPYL ALCOHOL\LEUPROLIDE ACETATE
     Dosage: 7.5 MILLIGRAM, 1 EVERY 30 DAYS
     Route: 030
  193. LEUPROLIDE ACETATE [Suspect]
     Active Substance: ISOPROPYL ALCOHOL\LEUPROLIDE ACETATE
     Dosage: 7.5 MILLIGRAM, UNK
     Route: 030
  194. ACETAMINOPHEN\METHOCARBAMOL [Suspect]
     Active Substance: ACETAMINOPHEN\METHOCARBAMOL
     Indication: Child abuse
     Dosage: 400 MILLIGRAM, BID (1 EVEY 12 HOURS)
     Route: 048
  195. ACETAMINOPHEN\METHOCARBAMOL [Suspect]
     Active Substance: ACETAMINOPHEN\METHOCARBAMOL
     Indication: Back pain
     Dosage: UNK
     Route: 048
  196. ACETAMINOPHEN\METHOCARBAMOL [Suspect]
     Active Substance: ACETAMINOPHEN\METHOCARBAMOL
     Dosage: 900 MILLIGRAM, OD (1 EVERY 1 DAYS) (FORMULATION: UNKNOWN)
     Route: 065
  197. ACETAMINOPHEN\METHOCARBAMOL [Suspect]
     Active Substance: ACETAMINOPHEN\METHOCARBAMOL
     Dosage: UNK UNK, BID
     Route: 048
  198. ALBUTEROL [Suspect]
     Active Substance: ALBUTEROL
     Indication: Child abuse
     Dosage: 1 DOSAGE FORM, 1 EVERY 4 HOURS
  199. POLYETHYLENE GLYCOL 3350 [Suspect]
     Active Substance: POLYETHYLENE GLYCOL 3350
     Indication: Child abuse
     Dosage: 30 MILLIGRAM, BID (1 EVERY 12 HOURS)
     Route: 048
  200. POLYETHYLENE GLYCOL 3350 [Suspect]
     Active Substance: POLYETHYLENE GLYCOL 3350
     Dosage: 30 MILLIGRAM, 1 EVERY .5 DAYS
     Route: 048
  201. POLYETHYLENE GLYCOL 3350 [Suspect]
     Active Substance: POLYETHYLENE GLYCOL 3350
     Dosage: 30 MILLIGRAM, BID (2 EVERY 1 DAYS)
     Route: 048
  202. FLUTICASONE FUROATE [Suspect]
     Active Substance: FLUTICASONE FUROATE
     Indication: Child abuse
     Dosage: 1 DOSAGE FORM, OD
  203. FLUTICASONE FUROATE [Suspect]
     Active Substance: FLUTICASONE FUROATE
     Dosage: 2 DOSAGE FORM
  204. FLUTICASONE FUROATE [Suspect]
     Active Substance: FLUTICASONE FUROATE
     Dosage: UNK
  205. FLUTICASONE FUROATE [Suspect]
     Active Substance: FLUTICASONE FUROATE
     Dosage: UNK
  206. FLUTICASONE FUROATE [Suspect]
     Active Substance: FLUTICASONE FUROATE
     Dosage: 20 MILLIGRAM, QD
  207. VITAMIN D3 [Suspect]
     Active Substance: CHOLECALCIFEROL
     Indication: Child abuse
     Dosage: UNK, OD
     Route: 048
  208. VITAMIN D3 [Suspect]
     Active Substance: CHOLECALCIFEROL
     Dosage: 2000 INTERNATIONAL UNIT, OD
     Route: 048
  209. VITAMIN D3 [Suspect]
     Active Substance: CHOLECALCIFEROL
     Dosage: UNK
     Route: 048
  210. LEUPROLIDE ACETATE [Suspect]
     Active Substance: ISOPROPYL ALCOHOL\LEUPROLIDE ACETATE
     Indication: Child abuse
     Dosage: 7.5 MILLIGRAM (1 EVERY 1 MONTH)
     Route: 030
  211. VITAMIN D3 [Suspect]
     Active Substance: CHOLECALCIFEROL
     Indication: Vitamin supplementation
     Dosage: 2000 INTERNATIONAL UNIT (1 EVERY 1 DAYS
     Route: 048
  212. VITAMIN D3 [Suspect]
     Active Substance: CHOLECALCIFEROL
     Indication: Child abuse
     Dosage: UNK, 1 EVERY 1 DAY
     Route: 048
  213. VITAMIN D3 [Suspect]
     Active Substance: CHOLECALCIFEROL
     Dosage: 200 INTERNATIONAL UNIT, 1 EVERY 1 DAYS
     Route: 048
  214. DIMENHYDRINATE [Suspect]
     Active Substance: DIMENHYDRINATE
     Indication: Child abuse
     Dosage: 12.5 MILLIGRAM, QID (4 EVERY 1 DAYS)
     Route: 048
  215. DIMENHYDRINATE [Suspect]
     Active Substance: DIMENHYDRINATE
     Indication: Constipation
     Dosage: 20.0 MILLIGRAM, QD (1 EVERY 1 DAYS)
     Route: 048
  216. DIMENHYDRINATE [Suspect]
     Active Substance: DIMENHYDRINATE
     Dosage: 25.0 MILLIGRAM, QD (1 EVERY 1 DAYS)
     Route: 048
  217. DIMENHYDRINATE [Suspect]
     Active Substance: DIMENHYDRINATE
     Dosage: 20 MILLIGRAM, QD
     Route: 048
  218. HYDROMORPHONE HYDROCHLORIDE [Suspect]
     Active Substance: HYDROMORPHONE HYDROCHLORIDE
     Indication: Back pain
     Dosage: UNK
     Route: 065
  219. MONTELUKAST SODIUM [Suspect]
     Active Substance: MONTELUKAST SODIUM
     Indication: Child abuse
     Dosage: 10 MILLIGRAM, OD
     Route: 048
  220. GLYCOLIC ACID [Suspect]
     Active Substance: GLYCOLIC ACID
     Indication: Product used for unknown indication
     Dosage: UNK
     Route: 065
  221. ROBAXISAL [Suspect]
     Active Substance: ASPIRIN\METHOCARBAMOL
     Indication: Product used for unknown indication
     Dosage: 400 MILLIGRAM 1 EVERY .5 DAYS
     Route: 065
  222. ROBAXISAL [Suspect]
     Active Substance: ASPIRIN\METHOCARBAMOL
     Dosage: 500 MILLIGRAM 1 EVERY .5 DAYS
     Route: 048
  223. ROBAXISAL [Suspect]
     Active Substance: ASPIRIN\METHOCARBAMOL
     Dosage: 400 MILLIGRAM (2 EVERY 1 DAYS)
     Route: 065
  224. ROBAXISAL [Suspect]
     Active Substance: ASPIRIN\METHOCARBAMOL
     Dosage: 500 MILLIGRAM 2 EVERY 1 DAYS
     Route: 048
  225. ROBAXISAL [Suspect]
     Active Substance: ASPIRIN\METHOCARBAMOL
     Dosage: 400 MILLIGRAM 2 EVERY 1 DAYS
     Route: 048
  226. TYLENOL [Suspect]
     Active Substance: ACETAMINOPHEN
     Indication: Product used for unknown indication
     Route: 065
  227. TYLENOL [Suspect]
     Active Substance: ACETAMINOPHEN
     Dosage: 400 MILLIGRAM, EVERY 12 HOURS
     Route: 065
  228. SODIUM BICARBONATE [Suspect]
     Active Substance: SODIUM BICARBONATE
     Indication: Product used for unknown indication
     Dosage: UNK
     Route: 065
  229. POTASSIUM CHLORIDE [Suspect]
     Active Substance: POTASSIUM CHLORIDE
     Indication: Product used for unknown indication
     Dosage: UNK
     Route: 065
  230. FLUOXETINE HYDROCHLORIDE [Suspect]
     Active Substance: FLUOXETINE HYDROCHLORIDE
     Indication: Product used for unknown indication
     Dosage: 20 MILLIGRAM, 1 EVERY 1 DAY
     Route: 048
  231. FLUOXETINE HYDROCHLORIDE [Suspect]
     Active Substance: FLUOXETINE HYDROCHLORIDE
     Dosage: 20 MILLIGRAM
     Route: 048
  232. POLYETHYLENE GLYCOLS [Suspect]
     Active Substance: POLYETHYLENE GLYCOLS
     Indication: Product used for unknown indication
     Dosage: 30 MILLIGRAM, 2 EVERY 1 DAY
     Route: 048
  233. POLYETHYLENE GLYCOLS [Suspect]
     Active Substance: POLYETHYLENE GLYCOLS
     Dosage: 30 MILLIGRAM
     Route: 048
  234. HYDROMORPHONE HCL [Suspect]
     Active Substance: HYDROMORPHONE HYDROCHLORIDE
     Indication: Pain management
     Dosage: 0.5 MILLIGRAM, PRN (SOLUTION INTRAMUSCULAR)
     Route: 060
  235. RANITIDINE HYDROCHLORIDE [Suspect]
     Active Substance: RANITIDINE HYDROCHLORIDE
     Indication: Product used for unknown indication
     Dosage: 150 MILLIGRAM, 1 EVERY 1 DAY
     Route: 048
  236. HYDROMORPHONE [Suspect]
     Active Substance: HYDROMORPHONE
     Indication: Pain management
     Dosage: UNK
     Route: 065
  237. HYDROMORPHONE [Suspect]
     Active Substance: HYDROMORPHONE
     Indication: Child abuse
  238. HYDROMORPHONE [Suspect]
     Active Substance: HYDROMORPHONE
     Indication: Back pain
  239. RANITIDINE HYDROCHLORIDE [Suspect]
     Active Substance: RANITIDINE HYDROCHLORIDE
     Indication: Product used for unknown indication
     Dosage: 150 MILLIGRAM, 1 EVERY 1 DAYS
     Route: 065
  240. KETOROLAC [Suspect]
     Active Substance: KETOROLAC TROMETHAMINE
     Indication: Pain
     Dosage: 20 MILLIGRAM 1 EVERY 6 HOURS
     Route: 048
  241. KETOROLAC [Suspect]
     Active Substance: KETOROLAC TROMETHAMINE
     Dosage: 20 MILLIGRAM 4 EVERY 1 DAYS
     Route: 048
  242. KETOROLAC [Suspect]
     Active Substance: KETOROLAC TROMETHAMINE
     Dosage: UNK
     Route: 065
  243. KETOROLAC [Suspect]
     Active Substance: KETOROLAC TROMETHAMINE
     Dosage: 20 MILLIGRAM 1 EVERY 6 HOURS
     Route: 065
  244. KETOROLAC [Suspect]
     Active Substance: KETOROLAC TROMETHAMINE
     Dosage: 20 MILLIGRAM
     Route: 065
  245. ALBUTEROL SULFATE [Suspect]
     Active Substance: ALBUTEROL SULFATE
     Indication: Product used for unknown indication
     Dosage: 100 MICROGRAM, 1 EVERY 4 HOURS
  246. ALBUTEROL SULFATE [Suspect]
     Active Substance: ALBUTEROL SULFATE
     Dosage: 150 MILLIGRAM, 1 EVERY 4 HOURS
  247. ALBUTEROL SULFATE [Suspect]
     Active Substance: ALBUTEROL SULFATE
     Dosage: 2 DOSAGE FORM
     Route: 045
  248. POLYETHYLENE GLYCOL 3350\POTASSIUM CHLORIDE\SODIUM BICARBONATE\SODIUM [Suspect]
     Active Substance: POLYETHYLENE GLYCOL 3350\POTASSIUM CHLORIDE\SODIUM BICARBONATE\SODIUM CHLORIDE
     Indication: Product used for unknown indication
     Dosage: 30 MILLIGRAM,  2 EVERY 1 DAYS
     Route: 048
  249. POLYETHYLENE GLYCOL 3350\POTASSIUM CHLORIDE\SODIUM BICARBONATE\SODIUM [Suspect]
     Active Substance: POLYETHYLENE GLYCOL 3350\POTASSIUM CHLORIDE\SODIUM BICARBONATE\SODIUM CHLORIDE
     Dosage: 30 MILLIGRAM,  2 EVERY 1 DAYS
     Route: 065
  250. POLYETHYLENE GLYCOL 3350\POTASSIUM CHLORIDE\SODIUM BICARBONATE\SODIUM [Suspect]
     Active Substance: POLYETHYLENE GLYCOL 3350\POTASSIUM CHLORIDE\SODIUM BICARBONATE\SODIUM CHLORIDE
     Dosage: 30 MILLIGRAM
     Route: 065
  251. ASCORBIC ACID [Concomitant]
     Active Substance: ASCORBIC ACID
     Indication: Product used for unknown indication
     Dosage: 1500 MILLIGRAM, QD
     Route: 048
  252. ARIPIPRAZOLE [Concomitant]
     Active Substance: ARIPIPRAZOLE
     Indication: Product used for unknown indication
     Dosage: 2 MILLIGRAM, TID
     Route: 048
  253. BACLOFEN [Concomitant]
     Active Substance: BACLOFEN
     Indication: Product used for unknown indication
     Dosage: 20 MILLIGRAM, TID
     Route: 048
  254. BISACODYL [Concomitant]
     Active Substance: BISACODYL
     Indication: Product used for unknown indication
     Dosage: 5 MILLIGRAM, QD
     Route: 048
  255. CELECOXIB [Concomitant]
     Active Substance: CELECOXIB
     Indication: Child abuse
     Dosage: 100 MILLIGRAM, BID (1 EVERY 12 HOURS)
     Route: 048
  256. CELECOXIB [Concomitant]
     Active Substance: CELECOXIB
     Indication: Back pain
  257. CELECOXIB [Concomitant]
     Active Substance: CELECOXIB
     Indication: Pain management
  258. CHOLECALCIFEROL [Concomitant]
     Active Substance: CHOLECALCIFEROL
     Indication: Product used for unknown indication
     Dosage: UNK, QD
     Route: 048
  259. CLONIDINE [Concomitant]
     Active Substance: CLONIDINE
     Indication: Product used for unknown indication
     Dosage: 0.05 MILLIGRAM, QD
     Route: 048
  260. CLONIDINE [Concomitant]
     Active Substance: CLONIDINE
     Dosage: 0.1 MILLIGRAM, QD
     Route: 048
  261. DIMENHYDRINATE [Concomitant]
     Active Substance: DIMENHYDRINATE
     Indication: Constipation
     Dosage: 25 MILLIGRAM, QD
     Route: 048
  262. DIPHENHYDRAMINE [Concomitant]
     Active Substance: DIPHENHYDRAMINE
     Indication: Pruritus
     Dosage: 12.5 MILLIGRAM, QID
     Route: 048
  263. FLUOXETINE [Concomitant]
     Active Substance: FLUOXETINE HYDROCHLORIDE
     Indication: Product used for unknown indication
     Dosage: 20 MILLIGRAM, QD
     Route: 048
  264. FLUTICASONE [Concomitant]
     Active Substance: FLUTICASONE
     Indication: Product used for unknown indication
     Dosage: 250 MICROGRAM, QD
     Route: 045
  265. HYDROXYCHLOROQUINE [Concomitant]
     Active Substance: HYDROXYCHLOROQUINE
     Indication: Product used for unknown indication
     Dosage: 400 MILLIGRAM, QD
     Route: 048
  266. KETOROLAC [Concomitant]
     Active Substance: KETOROLAC TROMETHAMINE
     Indication: Pain
     Dosage: 20 MILLIGRAM, QID
     Route: 048
  267. KETOROLAC [Concomitant]
     Active Substance: KETOROLAC TROMETHAMINE
     Indication: Child abuse
  268. LEUPROLIDE ACETATE [Concomitant]
     Active Substance: ISOPROPYL ALCOHOL\LEUPROLIDE ACETATE
     Indication: Product used for unknown indication
     Dosage: 7.5 MILLIGRAM, 1 EVERY 1 MONTH
     Route: 030
  269. POLYETHYLENE GLYCOL 3350 [Concomitant]
     Active Substance: POLYETHYLENE GLYCOL 3350
     Indication: Product used for unknown indication
     Dosage: 30 MILLIGRAM, BID
     Route: 048
  270. MELATONIN [Concomitant]
     Active Substance: MELATONIN
     Indication: Sleep disorder
     Dosage: 10 MILLIGRAM, OD
     Route: 048
  271. ACETAMINOPHEN\METHOCARBAMOL [Concomitant]
     Active Substance: ACETAMINOPHEN\METHOCARBAMOL
     Indication: Product used for unknown indication
     Dosage: UNK, BID
     Route: 048
  272. MONTELUKAST [Concomitant]
     Active Substance: MONTELUKAST SODIUM
     Indication: Product used for unknown indication
     Dosage: 10 MILLIGRAM, QD
     Route: 048
  273. DOCONEXENT\ICOSAPENT [Concomitant]
     Active Substance: DOCONEXENT\ICOSAPENT
     Indication: Product used for unknown indication
     Dosage: UNK, QD
     Route: 048
  274. PANTOPRAZOLE [Concomitant]
     Active Substance: PANTOPRAZOLE
     Indication: Product used for unknown indication
     Dosage: 40 MILLIGRAM, QD
     Route: 048
  275. PHENOBARBITAL [Concomitant]
     Active Substance: PHENOBARBITAL
     Indication: Product used for unknown indication
     Dosage: 30 MILLIGRAM, BID
     Route: 048
  276. PHENOBARBITAL [Concomitant]
     Active Substance: PHENOBARBITAL
     Dosage: 30 MILLIGRAM, 1 EVERY .5 DAYS
     Route: 048
  277. RANITIDINE [Concomitant]
     Active Substance: RANITIDINE
     Indication: Product used for unknown indication
     Dosage: 150 MILLIGRAM, QD
     Route: 048
  278. ALBUTEROL [Concomitant]
     Active Substance: ALBUTEROL
     Indication: Product used for unknown indication
     Dosage: 100 MICROGRAM, 6 EVERY ONE DAY
     Route: 045
  279. POLYETHYLENE GLYCOL\POTASSIUM CHLORIDE\SODIUM BICARBONATE [Concomitant]
     Active Substance: POLYETHYLENE GLYCOL\POTASSIUM CHLORIDE\SODIUM BICARBONATE
     Indication: Product used for unknown indication
     Dosage: UNK
     Route: 065
  280. VITAMIN C [Concomitant]
     Active Substance: ASCORBIC ACID
     Indication: Product used for unknown indication
     Dosage: UNK
     Route: 065
  281. CHOLECALCIFEROL [Suspect]
     Active Substance: CHOLECALCIFEROL
     Indication: Vitamin supplementation
     Dosage: UNK
     Route: 065
  282. HIGH DENSITY POLYETHYLENE [Suspect]
     Active Substance: HIGH DENSITY POLYETHYLENE
     Indication: Product used for unknown indication
     Dosage: 30 MILLIGRAM, 2 EVERY 1 DAYS
     Route: 048

REACTIONS (16)
  - Victim of child abuse [Unknown]
  - Intentional product misuse [Unknown]
  - Child abuse [Unknown]
  - Product prescribing error [Unknown]
  - Epidural lipomatosis [Recovered/Resolved]
  - Obesity [Recovered/Resolved]
  - Juvenile idiopathic arthritis [Recovered/Resolved]
  - Tenderness [Recovered/Resolved]
  - Product use issue [Unknown]
  - Off label use [Unknown]
  - Product use in unapproved indication [Unknown]
  - Inappropriate schedule of product administration [Unknown]
  - Respiratory depression [Recovered/Resolved]
  - Drug abuse [Unknown]
  - Drug dependence [Unknown]
  - Drug ineffective [Unknown]
